FAERS Safety Report 5351027-7 (Version None)
Quarter: 2007Q2

REPORT INFORMATION
  Report Type: 
  Country: None (occurrence: None)
  Receive Date: 20070608
  Receipt Date: 20070601
  Transmission Date: 20071010
  Serious: Yes (Disabling, Other)
  Sender: FDA-Public Use
  Company Number: US-BAYER-200711702BWH

PATIENT
  Sex: Male

DRUGS (1)
  1. CIPRO [Suspect]
     Indication: DRUG USE FOR UNKNOWN INDICATION
     Route: 048

REACTIONS (10)
  - ARTHRALGIA [None]
  - BALANCE DISORDER [None]
  - FEELING ABNORMAL [None]
  - INSOMNIA [None]
  - MYALGIA [None]
  - NAUSEA [None]
  - NERVE INJURY [None]
  - NEUROPATHY [None]
  - SWELLING [None]
  - TREMOR [None]
